FAERS Safety Report 24126234 (Version 2)
Quarter: 2024Q3

REPORT INFORMATION
  Report Type: Spontaneous
  Country: JP (occurrence: JP)
  Receive Date: 20240723
  Receipt Date: 20240911
  Transmission Date: 20241016
  Serious: Yes (Hospitalization)
  Sender: MERCK
  Company Number: JP-MSD-M2023-37344

PATIENT
  Age: 31 Year
  Sex: Female

DRUGS (4)
  1. KEYTRUDA [Suspect]
     Active Substance: PEMBROLIZUMAB
     Indication: Triple negative breast cancer
     Dosage: 200 MILLIGRAM, Q3W
     Route: 041
     Dates: start: 20230512, end: 2023
  2. KEYTRUDA [Suspect]
     Active Substance: PEMBROLIZUMAB
     Dosage: 200 MILLIGRAM, Q3W
     Route: 041
     Dates: start: 2023
  3. PACLITAXEL [Suspect]
     Active Substance: PACLITAXEL
     Indication: Triple negative breast cancer
     Dosage: UNK, QW
     Route: 041
     Dates: start: 20230512, end: 2023
  4. CARBOPLATIN [Concomitant]
     Active Substance: CARBOPLATIN
     Indication: Triple negative breast cancer
     Dosage: UNK, QW
     Route: 065
     Dates: start: 20230512, end: 2023

REACTIONS (1)
  - Hepatic function abnormal [Recovered/Resolved]

NARRATIVE: CASE EVENT DATE: 20230707
